FAERS Safety Report 17380196 (Version 1)
Quarter: 2020Q1

REPORT INFORMATION
  Report Type: Spontaneous
  Country: US (occurrence: US)
  Receive Date: 20200206
  Receipt Date: 20200206
  Transmission Date: 20200409
  Serious: No
  Sender: FDA-Public Use
  Company Number: None

PATIENT
  Age: 51 Year
  Sex: Female
  Weight: 63 kg

DRUGS (3)
  1. ONE-A-DAY WOMEN^S MULTIVITAMINS [Concomitant]
  2. BUPROPION HCL EXTENDED-RELEASE TABLETS USP (XL) 300 MG [Suspect]
     Active Substance: BUPROPION HYDROCHLORIDE
     Indication: DEPRESSION
     Dosage: ?          QUANTITY:1 TABLET(S);?
     Route: 048
     Dates: start: 20100201, end: 20200206
  3. MOMETASONE NASAL STEROID [Concomitant]

REACTIONS (3)
  - Blood pressure increased [None]
  - Tinnitus [None]
  - Dry mouth [None]

NARRATIVE: CASE EVENT DATE: 20200126
